FAERS Safety Report 5196240-7 (Version None)
Quarter: 2007Q1

REPORT INFORMATION
  Report Type: 
  Country: None (occurrence: None)
  Receive Date: 20070102
  Receipt Date: 20061221
  Transmission Date: 20070707
  Serious: Yes (Hospitalization)
  Sender: FDA-Public Use
  Company Number: BR-PFIZER INC-2006126992

PATIENT
  Sex: Female

DRUGS (4)
  1. SILDENAFIL (PAH) [Suspect]
     Indication: CONGENITAL CARDIOVASCULAR ANOMALY
     Route: 048
  2. PHENOBARBITAL TAB [Concomitant]
     Route: 048
  3. EPELIN [Concomitant]
     Route: 048
     Dates: start: 20060701
  4. FUROSEMIDE [Concomitant]
     Dates: start: 20060101

REACTIONS (3)
  - INFLUENZA [None]
  - INTENTIONAL DRUG MISUSE [None]
  - WRONG TECHNIQUE IN DRUG USAGE PROCESS [None]
